FAERS Safety Report 13376640 (Version 2)
Quarter: 2017Q2

REPORT INFORMATION
  Report Type: Spontaneous
  Country: US (occurrence: US)
  Receive Date: 20170328
  Receipt Date: 20170403
  Transmission Date: 20170830
  Serious: Yes (Other)
  Sender: FDA-Public Use
  Company Number: US-ENDO PHARMACEUTICALS INC-2017-001522

PATIENT
  Age: 52 Year
  Sex: Male

DRUGS (3)
  1. XIAFLEX [Suspect]
     Active Substance: COLLAGENASE CLOSTRIDIUM HISTOLYTICUM
     Dosage: UNK, FIRST CYCLE, SECOND INJECTION
     Route: 026
  2. XIAFLEX [Suspect]
     Active Substance: COLLAGENASE CLOSTRIDIUM HISTOLYTICUM
     Dosage: UNK, FIRST CYCLE, FIRST INJECTION
     Route: 026
  3. XIAFLEX [Suspect]
     Active Substance: COLLAGENASE CLOSTRIDIUM HISTOLYTICUM
     Indication: PEYRONIE^S DISEASE
     Dosage: UNK, SECOND CYCLE, UNKNOWN INJECTION
     Route: 026

REACTIONS (3)
  - Fracture of penis [Recovered/Resolved]
  - Corpora cavernosa surgery [Recovered/Resolved]
  - Drug ineffective [Recovered/Resolved]
